FAERS Safety Report 9297538 (Version 1)
Quarter: 2013Q2

REPORT INFORMATION
  Report Type: Spontaneous
  Country: US (occurrence: None)
  Receive Date: 20130517
  Receipt Date: 20130517
  Transmission Date: 20140414
  Serious: No
  Sender: FDA-Public Use
  Company Number: None

PATIENT
  Age: 79 Year
  Sex: Male
  Weight: 67 kg

DRUGS (1)
  1. DEXAMETHASONE [Suspect]
     Route: 048
     Dates: start: 20130302, end: 20130328

REACTIONS (1)
  - Hyperglycaemia [None]
